FAERS Safety Report 11463563 (Version 1)
Quarter: 2015Q3

REPORT INFORMATION
  Report Type: Spontaneous
  Country: US (occurrence: US)
  Receive Date: 20150831
  Receipt Date: 20150831
  Transmission Date: 20151125
  Serious: Yes (Other)
  Sender: FDA-Public Use
  Company Number: US-ELI_LILLY_AND_COMPANY-US201103008896

PATIENT
  Age: 75 Year
  Sex: Female

DRUGS (4)
  1. DILAUDID [Concomitant]
     Active Substance: HYDROMORPHONE HYDROCHLORIDE
     Indication: PAIN
     Dosage: 2 MG, TID AS NEEDED
  2. CYMBALTA [Suspect]
     Active Substance: DULOXETINE HYDROCHLORIDE
     Dosage: 30 MG, QD
     Dates: start: 20110324
  3. CYMBALTA [Suspect]
     Active Substance: DULOXETINE HYDROCHLORIDE
     Indication: NEURALGIA
     Dosage: UNK, UNKNOWN
  4. TEMAZEPAM. [Concomitant]
     Active Substance: TEMAZEPAM
     Dosage: 30 MG, EACH EVENING

REACTIONS (11)
  - Feeling jittery [Unknown]
  - Blood pressure increased [Unknown]
  - Insomnia [Unknown]
  - Off label use [Not Recovered/Not Resolved]
  - Pain in extremity [Unknown]
  - Nausea [Unknown]
  - Gait disturbance [Unknown]
  - Pain [Unknown]
  - Suicidal ideation [Unknown]
  - Dizziness [Unknown]
  - Dry mouth [Unknown]

NARRATIVE: CASE EVENT DATE: 20110324
